FAERS Safety Report 10412332 (Version 1)
Quarter: 2014Q3

REPORT INFORMATION
  Report Type: Spontaneous
  Country: JP (occurrence: JP)
  Receive Date: 20140827
  Receipt Date: 20140827
  Transmission Date: 20150326
  Serious: Yes (Death, Other)
  Sender: FDA-Public Use
  Company Number: JP-ELI_LILLY_AND_COMPANY-JP201408008060

PATIENT
  Age: 49 Year
  Sex: Female

DRUGS (1)
  1. GEMZAR [Suspect]
     Active Substance: GEMCITABINE HYDROCHLORIDE
     Indication: DUCTAL ADENOCARCINOMA OF PANCREAS
     Dosage: 1000 MG/M2, OTHER
     Route: 042

REACTIONS (5)
  - Malignant neoplasm progression [Unknown]
  - Leukopenia [Unknown]
  - Anaemia [Unknown]
  - Injection site reaction [Unknown]
  - Cerebral infarction [Fatal]
